FAERS Safety Report 20718672 (Version 1)
Quarter: 2022Q2

REPORT INFORMATION
  Report Type: Spontaneous
  Country: US (occurrence: US)
  Receive Date: 20220418
  Receipt Date: 20220418
  Transmission Date: 20220720
  Serious: No
  Sender: FDA-Public Use
  Company Number: US-ALVOGEN-2021-ALVOGEN-116844

PATIENT
  Sex: Female

DRUGS (1)
  1. TENORMIN [Suspect]
     Active Substance: ATENOLOL
     Indication: Tachycardia

REACTIONS (5)
  - Blood pressure increased [Unknown]
  - Erythema [Unknown]
  - Chest discomfort [Unknown]
  - Off label use [Unknown]
  - Product substitution issue [Unknown]
